FAERS Safety Report 7219140-7 (Version None)
Quarter: 2011Q1

REPORT INFORMATION
  Report Type: 
  Country: None (occurrence: None)
  Receive Date: 20110111
  Receipt Date: 20101231
  Transmission Date: 20110831
  Serious: Yes (Other)
  Sender: FDA-Public Use
  Company Number: US-ELI_LILLY_AND_COMPANY-US201011004369

PATIENT
  Sex: Male

DRUGS (24)
  1. PREDNISONE [Concomitant]
     Indication: COLITIS ULCERATIVE
     Dosage: 30 MG, UNK
  2. SPIRIVA [Concomitant]
     Dosage: UNK, DAILY (1/D)
  3. PLAVIX [Concomitant]
     Indication: MYOCARDIAL INFARCTION
     Dosage: 75 MG, DAILY (1/D)
  4. POTASSIUM [Concomitant]
     Dosage: 550 MG, DAILY (1/D)
  5. LOVENOX [Concomitant]
     Dosage: UNK, 2/D
  6. WARFARIN [Concomitant]
     Dosage: 5 MG, DAILY (1/D)
  7. FOLIC ACID [Concomitant]
     Dosage: 400 MG, DAILY (1/D)
  8. VITAMIN B-12 [Concomitant]
     Dosage: 1500 UG, DAILY (1/D)
  9. METOPROLOL [Concomitant]
     Dosage: 25 MG, 2/D
  10. LISINOPRIL [Concomitant]
     Indication: BLOOD PRESSURE INCREASED
     Dosage: UNK, AS NEEDED
  11. OXYCODONE [Concomitant]
     Dosage: 5 MG, AS NEEDED
  12. VITAMIN D [Concomitant]
     Dosage: 400 MG, DAILY (1/D)
  13. LASIX [Concomitant]
     Dosage: 20 MG, DAILY (1/D)
  14. NITROGLYCERIN [Concomitant]
     Dosage: 0.4 MG, AS NEEDED
  15. ZANTAC [Concomitant]
     Dosage: 300 MG, DAILY (1/D)
  16. FORTEO [Suspect]
     Indication: OSTEOPOROSIS
     Dosage: 20 UG, DAILY (1/D)
     Dates: start: 20100616
  17. FORTEO [Suspect]
     Dosage: 20 UG, DAILY (1/D)
  18. BACTRIM [Concomitant]
     Dosage: UNK, QOD
  19. NYSTATIN [Concomitant]
     Indication: CANDIDIASIS
  20. OXYGEN [Concomitant]
     Dosage: 2 LITER, UNK
  21. VENTOLIN /SCH/ [Concomitant]
     Dosage: UNK, AS NEEDED
  22. CALCIUM WITH VITAMIN D [Concomitant]
     Dosage: UNK, 3/D
  23. MAGNESIUM [Concomitant]
     Dosage: 250 MG, DAILY (1/D)
  24. SIMVASTATIN [Concomitant]
     Dosage: 40 MG, DAILY (1/D)

REACTIONS (5)
  - DYSPNOEA [None]
  - RIB FRACTURE [None]
  - HEART RATE IRREGULAR [None]
  - CORONARY ARTERY OCCLUSION [None]
  - CONTUSION [None]
